FAERS Safety Report 7714446-7 (Version None)
Quarter: 2011Q3

REPORT INFORMATION
  Report Type: 
  Country: None (occurrence: None)
  Receive Date: 20110829
  Receipt Date: 20110816
  Transmission Date: 20111222
  Serious: Yes (Life-Threatening)
  Sender: FDA-Public Use
  Company Number: GB-RANBAXY-2008RR-13988

PATIENT

DRUGS (3)
  1. METRONIDAZOLE [Suspect]
     Indication: TOOTH ABSCESS
     Dosage: UNK
     Route: 048
     Dates: start: 20070619, end: 20070619
  2. IBUPROFEN [Concomitant]
     Indication: DENTAL DISCOMFORT
     Dosage: UNK
     Route: 065
     Dates: start: 20070619
  3. AMOXICILLIN [Suspect]
     Indication: DENTAL DISCOMFORT
     Dosage: UNK
     Route: 065
     Dates: start: 20070619

REACTIONS (1)
  - ANAPHYLACTIC SHOCK [None]
